FAERS Safety Report 10196607 (Version 3)
Quarter: 2014Q2

REPORT INFORMATION
  Report Type: Spontaneous
  Country: ES (occurrence: ES)
  Receive Date: 20140527
  Receipt Date: 20140612
  Transmission Date: 20141212
  Serious: Yes (Other)
  Sender: FDA-Public Use
  Company Number: ES-PFIZER INC-2014137365

PATIENT
  Age: 69 Year
  Sex: Male

DRUGS (7)
  1. SUTENT [Suspect]
     Indication: CLEAR CELL RENAL CELL CARCINOMA
     Dosage: 50 MG, 1X/DAY
     Dates: start: 201309, end: 201404
  2. PREVENCOR [Concomitant]
     Dosage: UNK
  3. TAMSULOSIN [Concomitant]
     Dosage: UNK
  4. SINTROM [Concomitant]
     Dosage: UNK
  5. METFORMIN [Concomitant]
     Dosage: UNK
  6. DIOVAN [Concomitant]
     Dosage: UNK
  7. TERTENSIF [Concomitant]
     Dosage: UNK

REACTIONS (3)
  - Hypertriglyceridaemia [Unknown]
  - Hypertension [Unknown]
  - Epistaxis [Unknown]
